FAERS Safety Report 14781508 (Version 2)
Quarter: 2019Q3

REPORT INFORMATION
  Report Type: Spontaneous
  Country: SE (occurrence: SE)
  Receive Date: 20180419
  Receipt Date: 20190828
  Transmission Date: 20191004
  Serious: Yes (Hospitalization)
  Sender: FDA-Public Use
  Company Number: SE-MERCK KGAA-2046099

PATIENT
  Age: 46 Year
  Sex: Female
  Weight: 75 kg

DRUGS (7)
  1. LIOTHYRONIN [Suspect]
     Active Substance: LIOTHYRONINE SODIUM
     Dates: start: 2017
  2. EUTHYROX [Suspect]
     Active Substance: LEVOTHYROXINE SODIUM
     Indication: POST PROCEDURAL HYPOTHYROIDISM
     Dates: start: 2016
  3. LEVAXIN [Suspect]
     Active Substance: LEVOTHYROXINE SODIUM
     Dates: start: 20160201
  4. LIOTHYRONIN [Suspect]
     Active Substance: LIOTHYRONINE SODIUM
  5. LEVOTHYROXINE. [Suspect]
     Active Substance: LEVOTHYROXINE
  6. LEVAXIN [Suspect]
     Active Substance: LEVOTHYROXINE SODIUM
  7. EUTHYROX [Suspect]
     Active Substance: LEVOTHYROXINE SODIUM

REACTIONS (3)
  - Dyspnoea [Recovered/Resolved]
  - Hypersensitivity [Recovered/Resolved]
  - Malaise [Recovered/Resolved]

NARRATIVE: CASE EVENT DATE: 20160801
